FAERS Safety Report 15344479 (Version 4)
Quarter: 2019Q2

REPORT INFORMATION
  Report Type: Spontaneous
  Country: US (occurrence: US)
  Receive Date: 20180903
  Receipt Date: 20190509
  Transmission Date: 20190711
  Serious: Yes (Hospitalization, Other)
  Sender: FDA-Public Use
  Company Number: US-SA-2018SA242515

PATIENT
  Age: 71 Year
  Sex: Male
  Weight: 107 kg

DRUGS (6)
  1. DUPIXENT [Suspect]
     Active Substance: DUPILUMAB
     Indication: DERMATITIS ATOPIC
     Dosage: 600 MG, 1X
     Route: 058
     Dates: start: 20180813, end: 20180813
  2. TYLENOL EXTRA STRENGTH [Concomitant]
     Active Substance: ACETAMINOPHEN
     Dosage: 500 MG
     Route: 048
  3. PREDNISONE. [Concomitant]
     Active Substance: PREDNISONE
     Dosage: 80 MG
     Dates: start: 20180830, end: 201810
  4. DIPROLENE [Concomitant]
     Active Substance: BETAMETHASONE DIPROPIONATE
     Indication: DERMATITIS ATOPIC
  5. ALLEGRA [Concomitant]
     Active Substance: FEXOFENADINE HYDROCHLORIDE
  6. DIPROLENE [Concomitant]
     Active Substance: BETAMETHASONE DIPROPIONATE
     Indication: DERMATITIS CONTACT

REACTIONS (13)
  - Factor VIII deficiency [Unknown]
  - Pain in extremity [Unknown]
  - Thrombosis [Unknown]
  - Ecchymosis [Recovering/Resolving]
  - Arthralgia [Unknown]
  - Hypersensitivity [Unknown]
  - Joint swelling [Unknown]
  - Skin mass [Unknown]
  - Hospitalisation [Unknown]
  - Anti factor VIII antibody positive [Unknown]
  - Oedema [Unknown]
  - Peripheral swelling [Unknown]
  - Contusion [Unknown]

NARRATIVE: CASE EVENT DATE: 201808
